FAERS Safety Report 5787161-7 (Version None)
Quarter: 2008Q2

REPORT INFORMATION
  Report Type: 
  Country: None (occurrence: None)
  Receive Date: 20080625
  Receipt Date: 20080331
  Transmission Date: 20081010
  Serious: No
  Sender: FDA-Public Use
  Company Number: US-BAUSCH-2008BL001424

PATIENT
  Age: 62 Year
  Sex: Male

DRUGS (5)
  1. ALAWAY [Suspect]
     Indication: EYE ALLERGY
     Route: 047
     Dates: start: 20080331, end: 20080331
  2. PATANOL [Suspect]
     Indication: EYE ALLERGY
     Route: 047
     Dates: start: 20000301
  3. ALLEGRA [Concomitant]
     Indication: SEASONAL ALLERGY
     Route: 048
     Dates: start: 20000301, end: 20080327
  4. ZYRTEC [Concomitant]
     Indication: SEASONAL ALLERGY
     Route: 048
     Dates: start: 20080327
  5. ASPIRIN [Concomitant]
     Route: 048

REACTIONS (2)
  - INSTILLATION SITE IRRITATION [None]
  - INSTILLATION SITE PAIN [None]
